FAERS Safety Report 6309763-1 (Version None)
Quarter: 2009Q3

REPORT INFORMATION
  Report Type: 
  Country: None (occurrence: None)
  Receive Date: 20090814
  Receipt Date: 20090810
  Transmission Date: 20100115
  Serious: Yes (Life-Threatening)
  Sender: FDA-Public Use
  Company Number: FR-ORACLE-2009S1000326

PATIENT
  Sex: Female
  Weight: 95 kg

DRUGS (1)
  1. CUBICIN [Suspect]
     Indication: DEVICE RELATED INFECTION
     Route: 065
     Dates: start: 20090101, end: 20090101

REACTIONS (3)
  - HALLUCINATION [None]
  - METABOLIC ACIDOSIS [None]
  - RENAL FAILURE [None]
